FAERS Safety Report 10069970 (Version 1)
Quarter: 2014Q2

REPORT INFORMATION
  Report Type: Spontaneous
  Country: HR (occurrence: HR)
  Receive Date: 20140410
  Receipt Date: 20140410
  Transmission Date: 20141212
  Serious: Yes (Life-Threatening)
  Sender: FDA-Public Use
  Company Number: HR-ASTRAZENECA-2014SE24626

PATIENT
  Age: 76 Year
  Sex: Female

DRUGS (5)
  1. CRESTOR [Suspect]
     Route: 048
     Dates: start: 2013, end: 2014
  2. GLUCOPHAGE [Concomitant]
     Route: 048
  3. GLUCOBAY [Concomitant]
     Route: 048
  4. TRITACE [Concomitant]
     Route: 048
  5. SEROXAT [Concomitant]
     Route: 048

REACTIONS (1)
  - Choking [Recovering/Resolving]
